FAERS Safety Report 18689411 (Version 1)
Quarter: 2020Q4

REPORT INFORMATION
  Report Type: Report from Study
  Country: US (occurrence: US)
  Receive Date: 20201231
  Receipt Date: 20201231
  Transmission Date: 20210114
  Serious: Yes (Death, Hospitalization)
  Sender: FDA-Public Use
  Company Number: US-JNJFOC-20201129179

PATIENT
  Age: 73 Year
  Sex: Female

DRUGS (2)
  1. OFEV [Suspect]
     Active Substance: NINTEDANIB
     Indication: PRODUCT USED FOR UNKNOWN INDICATION
  2. MACITENTAN [Suspect]
     Active Substance: MACITENTAN
     Indication: PULMONARY ARTERIAL HYPERTENSION
     Route: 048
     Dates: start: 20200917, end: 20201204

REACTIONS (9)
  - Fatigue [Unknown]
  - Fluid retention [Recovering/Resolving]
  - Diarrhoea [Recovered/Resolved with Sequelae]
  - Weight decreased [Unknown]
  - Dyspnoea [Recovered/Resolved with Sequelae]
  - Pulmonary arterial hypertension [Fatal]
  - Dehydration [Recovered/Resolved]
  - Oxygen saturation decreased [Recovered/Resolved with Sequelae]
  - Renal impairment [Recovered/Resolved with Sequelae]

NARRATIVE: CASE EVENT DATE: 20201030
